FAERS Safety Report 22390231 (Version 1)
Quarter: 2023Q2

REPORT INFORMATION
  Report Type: Spontaneous
  Country: CA (occurrence: CA)
  Receive Date: 20230531
  Receipt Date: 20230531
  Transmission Date: 20230721
  Serious: Yes (Life-Threatening, Other)
  Sender: FDA-Public Use
  Company Number: CA-FreseniusKabi-FK202307439

PATIENT
  Age: 69 Year
  Sex: Female

DRUGS (1)
  1. HYDROMORPHONE [Suspect]
     Active Substance: HYDROMORPHONE
     Indication: Product used for unknown indication
     Dosage: FREQUENCY: ONCE
     Route: 042

REACTIONS (3)
  - Oxygen therapy [Recovered/Resolved]
  - Wrong technique in product usage process [Recovered/Resolved]
  - Respiratory arrest [Recovered/Resolved]
